FAERS Safety Report 25217053 (Version 1)
Quarter: 2025Q2

REPORT INFORMATION
  Report Type: Spontaneous
  Country: US (occurrence: US)
  Receive Date: 20250419
  Receipt Date: 20250419
  Transmission Date: 20250717
  Serious: No
  Sender: VERO BIOTECH
  Company Number: US-VEROBIOTECH-2025USVEROSPO00109

PATIENT

DRUGS (1)
  1. GENOSYL [Suspect]
     Active Substance: NITRIC OXIDE
     Indication: Product used for unknown indication

REACTIONS (1)
  - Exposure to toxic agent [Unknown]
